FAERS Safety Report 5313375-6 (Version None)
Quarter: 2007Q2

REPORT INFORMATION
  Report Type: 
  Country: None (occurrence: None)
  Receive Date: 20070426
  Receipt Date: 20070426
  Transmission Date: 20071010
  Serious: Yes (Hospitalization)
  Sender: FDA-Public Use
  Company Number: None

PATIENT
  Age: 72 Year
  Sex: Male
  Weight: 92 kg

DRUGS (5)
  1. CLOPIDOGREL [Suspect]
     Indication: CARDIAC ENZYMES INCREASED
     Dosage: 300 MG ONCE PO
     Route: 048
     Dates: start: 20070421, end: 20070421
  2. CLOPIDOGREL [Suspect]
     Indication: CORONARY ARTERY DISEASE
     Dosage: 300 MG ONCE PO
     Route: 048
     Dates: start: 20070421, end: 20070421
  3. ENOXAPARIN SODIUM [Suspect]
     Indication: CARDIAC ENZYMES INCREASED
     Dosage: 100 MG Q12H SQ
     Route: 058
     Dates: start: 20070421, end: 20070422
  4. ENOXAPARIN SODIUM [Suspect]
     Indication: CORONARY ARTERY DISEASE
     Dosage: 100 MG Q12H SQ
     Route: 058
     Dates: start: 20070421, end: 20070422
  5. LOVENOX [Concomitant]

REACTIONS (4)
  - BRAIN OEDEMA [None]
  - FALL [None]
  - HAEMORRHAGE INTRACRANIAL [None]
  - MUSCULOSKELETAL PAIN [None]
